FAERS Safety Report 4608632-2 (Version None)
Quarter: 2005Q1

REPORT INFORMATION
  Report Type: 
  Country: None (occurrence: None)
  Receive Date: 20050311
  Receipt Date: 20050311
  Transmission Date: 20050727
  Serious: Yes (Hospitalization)
  Sender: FDA-Public Use
  Company Number: None

PATIENT
  Age: 70 Year
  Sex: Male
  Weight: 54.8852 kg

DRUGS (3)
  1. WARFARIN [Suspect]
     Indication: ATRIAL THROMBOSIS
     Dosage: 5MG  DAILY ORAL
     Route: 048
     Dates: start: 19981001, end: 20050310
  2. CLARITHROMYCIN [Suspect]
     Indication: ACUTE SINUSITIS
     Dosage: 500 MG BID ORAL
     Route: 048
     Dates: start: 20050222, end: 20050303
  3. CLARITHROMYCIN [Suspect]
     Indication: BRONCHITIS
     Dosage: 500 MG BID ORAL
     Route: 048
     Dates: start: 20050222, end: 20050303

REACTIONS (3)
  - DRUG INTERACTION [None]
  - DRUG TOXICITY [None]
  - INTERNATIONAL NORMALISED RATIO INCREASED [None]
